APPROVED DRUG PRODUCT: FLURBIPROFEN
Active Ingredient: FLURBIPROFEN
Strength: 50MG
Dosage Form/Route: TABLET;ORAL
Application: A074358 | Product #001
Applicant: NATCO PHARMA LTD
Approved: Jun 20, 1994 | RLD: No | RS: No | Type: DISCN